FAERS Safety Report 4287151-X (Version None)
Quarter: 2004Q1

REPORT INFORMATION
  Report Type: 
  Country: None (occurrence: None)
  Receive Date: 20040121
  Receipt Date: 20030917
  Transmission Date: 20041129
  Serious: Yes (Hospitalization)
  Sender: FDA-Public Use
  Company Number: F03200300023

PATIENT
  Age: 56 Year
  Sex: Female
  Weight: 116.5744 kg

DRUGS (8)
  1. PLAVIX [Suspect]
     Indication: STENT PLACEMENT
     Dosage: 75 MG QD - ORAL
     Route: 048
     Dates: start: 20030707, end: 20030811
  2. PLAVIX [Suspect]
     Indication: THROMBOSIS PROPHYLAXIS
     Dosage: 75 MG QD - ORAL
     Route: 048
     Dates: start: 20030707, end: 20030811
  3. STUDY DRUG (NOS) - UNKNOWN - UNIT DOSE :UNKNOWN [Suspect]
     Dates: start: 20030707, end: 20030811
  4. ATENOLOL [Concomitant]
  5. DIPHENHYDRAMINE HCL [Concomitant]
  6. INSULIN GLARGINE [Concomitant]
  7. INSULIN LISPRO [Concomitant]
  8. ACETYLSALICYLIC ACID [Concomitant]

REACTIONS (1)
  - LOWER GASTROINTESTINAL HAEMORRHAGE [None]
